FAERS Safety Report 7962143-5 (Version None)
Quarter: 2011Q4

REPORT INFORMATION
  Report Type: 
  Country: None (occurrence: None)
  Receive Date: 20111207
  Receipt Date: 20111128
  Transmission Date: 20120403
  Serious: Yes (Hospitalization, Other)
  Sender: FDA-Public Use
  Company Number: US-PURDUE-USA-2011-0077432

PATIENT
  Age: 23 Year
  Sex: Male
  Weight: 78.6 kg

DRUGS (30)
  1. FENTANYL [Suspect]
     Indication: PAIN
     Dosage: 100 MCG, Q72H
     Dates: start: 20110919, end: 20111017
  2. ATIVAN [Suspect]
     Indication: NAUSEA
     Dosage: 1 MG, Q6H
     Route: 048
     Dates: start: 20110311
  3. DEMEROL [Suspect]
     Indication: CHILLS
  4. HYDROCORTISONE W/LIDOCAINE [Concomitant]
     Indication: PROCTALGIA
     Dosage: UNK
     Route: 061
     Dates: start: 20110919
  5. CELEXA [Suspect]
     Indication: DEPRESSION
     Dosage: UNK
     Dates: start: 20110331
  6. COLACE CAPSULES [Concomitant]
     Indication: CONSTIPATION
     Dosage: UNK
     Dates: start: 20110613
  7. MORPHINE SULFATE [Concomitant]
     Indication: PAIN
     Dosage: UNK
     Dates: start: 20111015
  8. FAMVIR                             /01226201/ [Concomitant]
     Indication: ANOGENITAL WARTS
     Dosage: UNK
     Dates: start: 20110331
  9. SCOPOLAMINE [Suspect]
     Indication: NAUSEA
     Dosage: 1.5 MG, Q72H
     Dates: start: 20111006, end: 20111014
  10. DEMEROL [Suspect]
     Indication: PAIN
     Dosage: UNK
     Dates: start: 20111016
  11. OMEPRAZOLE [Concomitant]
     Indication: PROPHYLAXIS
     Dosage: UNK
     Dates: start: 20110413, end: 20111017
  12. NEUPOGEN [Concomitant]
     Indication: NEUTROPENIA
     Dosage: UNK
     Dates: start: 20110614, end: 20110914
  13. STUDY DRUG [Suspect]
     Indication: LYMPHOCYTIC LEUKAEMIA
     Dosage: UNK, SEE TEXT
  14. MARINOL [Suspect]
     Indication: NAUSEA
     Dosage: 5 MG, TID
     Route: 048
     Dates: start: 20110404, end: 20111016
  15. CIPROFLOXACIN [Concomitant]
     Indication: BACTERIAL INFECTION
     Dosage: UNK
     Dates: start: 20110914, end: 20110916
  16. LIDOCAINE [Concomitant]
     Indication: PROCTALGIA
     Dosage: UNK
     Dates: start: 20110919, end: 20110919
  17. SCOPOLAMINE [Suspect]
     Indication: PAIN
  18. KYTRIL [Suspect]
     Indication: VOMITING
  19. CONCERTA [Concomitant]
     Indication: ATTENTION DEFICIT/HYPERACTIVITY DISORDER
  20. LORATADINE [Concomitant]
     Indication: SEASONAL ALLERGY
     Dosage: UNK
     Dates: start: 20110331
  21. NYSTATIN [Concomitant]
     Indication: MUCOSAL INFLAMMATION
     Dosage: UNK
     Dates: start: 20110821, end: 20110919
  22. ATIVAN [Suspect]
     Indication: ANXIETY
  23. KYTRIL [Suspect]
     Indication: NAUSEA
     Dosage: UNK
     Dates: start: 20111006
  24. FLUCONAZOLE [Concomitant]
     Indication: BACTERIAL INFECTION
     Dosage: UNK
     Dates: start: 20110331, end: 20110916
  25. HEPARIN [Concomitant]
     Indication: THROMBOSIS PROPHYLAXIS
     Dosage: UNK
     Dates: start: 20110331, end: 20110916
  26. DILAUDID [Suspect]
     Indication: PAIN
     Dosage: 2 MG, Q3H
     Dates: start: 20110628, end: 20111016
  27. SENNA-MINT WAF [Concomitant]
     Indication: CONSTIPATION
  28. MEPRON                             /01181501/ [Concomitant]
     Indication: BACTERIAL INFECTION
     Dosage: UNK
     Dates: start: 20110722
  29. POLYETHYLENE GLYCOL [Concomitant]
     Indication: CONSTIPATION
     Dosage: UNK
     Dates: start: 20110722, end: 20110919
  30. CHLORHEXIDINE GLUCONATE [Concomitant]
     Indication: GINGIVITIS
     Dosage: UNK
     Dates: start: 20110821, end: 20110919

REACTIONS (12)
  - SYSTEMIC MYCOSIS [None]
  - FUNGAL RHINITIS [None]
  - TOXICITY TO VARIOUS AGENTS [None]
  - DYSKINESIA [None]
  - MUSCLE SPASMS [None]
  - LEUKAEMIA RECURRENT [None]
  - ABDOMINAL PAIN [None]
  - FEBRILE NEUTROPENIA [None]
  - CHEST PAIN [None]
  - CLOSTRIDIUM DIFFICILE COLITIS [None]
  - PNEUMONIA FUNGAL [None]
  - SINUSITIS FUNGAL [None]
